FAERS Safety Report 17920944 (Version 1)
Quarter: 2020Q2

REPORT INFORMATION
  Report Type: Spontaneous
  Country: FR (occurrence: FR)
  Receive Date: 20200622
  Receipt Date: 20200622
  Transmission Date: 20200714
  Serious: Yes (Hospitalization)
  Sender: FDA-Public Use
  Company Number: FR-TEVA-2020-FR-1788965

PATIENT
  Age: 85 Year
  Sex: Female
  Weight: 60 kg

DRUGS (2)
  1. BISOPROLOL HEMIFUMARATE [Suspect]
     Active Substance: BISOPROLOL FUMARATE
     Indication: HYPERTENSION
     Dosage: 2.5 MILLIGRAM
     Route: 048
     Dates: end: 20200331
  2. DIGOXINE NATIVELLE 0,25 MG, COMPRIM? [Suspect]
     Active Substance: DIGOXIN
     Indication: ATRIAL FIBRILLATION
     Dosage: UNIT DOSE:1 DOSAGEFORM
     Route: 048
     Dates: end: 20200331

REACTIONS (2)
  - Sinus bradycardia [Recovered/Resolved]
  - Nausea [Recovered/Resolved]

NARRATIVE: CASE EVENT DATE: 20200331
